FAERS Safety Report 25754226 (Version 1)
Quarter: 2025Q3

REPORT INFORMATION
  Report Type: Spontaneous
  Country: US (occurrence: US)
  Receive Date: 20250903
  Receipt Date: 20250903
  Transmission Date: 20251020
  Serious: No
  Sender: Kenvue
  Company Number: US-KENVUE-20250805235

PATIENT
  Age: 3 Year
  Sex: Female

DRUGS (1)
  1. PEPCID COMPLETE [Suspect]
     Active Substance: CALCIUM CARBONATE\FAMOTIDINE\MAGNESIUM HYDROXIDE
     Indication: Accidental exposure to product
     Route: 048

REACTIONS (3)
  - Accidental exposure to product by child [Unknown]
  - Failure of child resistant product closure [Unknown]
  - Product container seal issue [Unknown]
